FAERS Safety Report 7751677-4 (Version None)
Quarter: 2011Q3

REPORT INFORMATION
  Report Type: 
  Country: None (occurrence: None)
  Receive Date: 20110914
  Receipt Date: 20110907
  Transmission Date: 20111222
  Serious: Yes (Other)
  Sender: FDA-Public Use
  Company Number: JP-BRISTOL-MYERS SQUIBB COMPANY-16054363

PATIENT
  Age: 50 Year
  Sex: Male

DRUGS (3)
  1. CISPLATIN [Suspect]
     Indication: SQUAMOUS CELL CARCINOMA
  2. TEGAFUR + GIMERACIL + OTERACIL POTASSIUM [Suspect]
  3. FLUOROURACIL [Suspect]
     Indication: SQUAMOUS CELL CARCINOMA

REACTIONS (1)
  - MYELODYSPLASTIC SYNDROME [None]
